FAERS Safety Report 15390104 (Version 1)
Quarter: 2018Q3

REPORT INFORMATION
  Report Type: Spontaneous
  Country: CO (occurrence: CO)
  Receive Date: 20180907
  Receipt Date: 20180907
  Transmission Date: 20181010
  Serious: No
  Sender: FDA-Public Use
  Company Number: None

PATIENT
  Age: 23 Year
  Sex: Female

DRUGS (1)
  1. NEUTROGENA OIL FREE ACNE WASH [Suspect]
     Active Substance: SALICYLIC ACID
     Indication: ACNE
     Dosage: ?          QUANTITY:2 PUFF(S);?
     Route: 061
     Dates: start: 20180902, end: 20180903

REACTIONS (5)
  - Dry skin [None]
  - Pruritus [None]
  - Skin exfoliation [None]
  - Erythema [None]
  - Burning sensation [None]

NARRATIVE: CASE EVENT DATE: 20180906
